FAERS Safety Report 15641492 (Version 2)
Quarter: 2018Q4

REPORT INFORMATION
  Report Type: Spontaneous
  Country: JP (occurrence: JP)
  Receive Date: 20181120
  Receipt Date: 20181226
  Transmission Date: 20190205
  Serious: Yes (Death, Life-Threatening, Other)
  Sender: FDA-Public Use
  Company Number: JP-UCBSA-2018046506

PATIENT
  Age: 66 Year
  Sex: Male
  Weight: 46 kg

DRUGS (13)
  1. ULCERLMIN [Concomitant]
     Active Substance: SUCRALFATE
     Indication: UPPER GASTROINTESTINAL HAEMORRHAGE
     Route: 050
     Dates: start: 20180416, end: 20181105
  2. VIMPAT [Suspect]
     Active Substance: LACOSAMIDE
     Indication: EPILEPSY
     Dosage: 50 MG, ONCE DAILY (QD)
     Dates: start: 20180627, end: 201806
  3. PREDNISOLONE. [Concomitant]
     Active Substance: PREDNISOLONE
     Indication: TOXIC EPIDERMAL NECROLYSIS
  4. TRAFERMIN [Concomitant]
     Active Substance: UNSPECIFIED INGREDIENT
     Indication: TOXIC EPIDERMAL NECROLYSIS
  5. SILVER SULFADIAZENE [Concomitant]
     Active Substance: SILVER SULFADIAZINE
     Indication: TOXIC EPIDERMAL NECROLYSIS
  6. NOVOLIN R [Concomitant]
     Active Substance: INSULIN HUMAN
     Indication: TYPE 2 DIABETES MELLITUS
     Route: 058
     Dates: start: 20171011, end: 20181105
  7. PHENYTOIN. [Concomitant]
     Active Substance: PHENYTOIN
     Indication: EPILEPSY
  8. VIMPAT [Suspect]
     Active Substance: LACOSAMIDE
     Dosage: 100 MG, ONCE DAILY (QD)
     Dates: start: 201806, end: 20180703
  9. VIMPAT [Suspect]
     Active Substance: LACOSAMIDE
     Dosage: 200 MG, ONCE DAILY (QD)
     Dates: start: 20180704, end: 20180902
  10. E KEPPRA [Suspect]
     Active Substance: LEVETIRACETAM
     Indication: EPILEPSY
     Dosage: 1000 MG, ONCE DAILY (QD)
     Dates: start: 20180707, end: 20180902
  11. METHYLPREDNISOLONE SODIUM SUCCINATE. [Concomitant]
     Active Substance: METHYLPREDNISOLONE SODIUM SUCCINATE
     Indication: TOXIC EPIDERMAL NECROLYSIS
  12. BUTYRATE PROPIONATE [Concomitant]
     Indication: TOXIC EPIDERMAL NECROLYSIS
  13. TRETINOIN TOCOFERIL [Concomitant]
     Active Substance: TRETINOIN TOCOFERIL
     Indication: TOXIC EPIDERMAL NECROLYSIS

REACTIONS (3)
  - Systemic mycosis [Fatal]
  - Toxic epidermal necrolysis [Recovering/Resolving]
  - Off label use [Unknown]

NARRATIVE: CASE EVENT DATE: 20180627
